FAERS Safety Report 6842757-6 (Version None)
Quarter: 2010Q3

REPORT INFORMATION
  Report Type: 
  Country: None (occurrence: None)
  Receive Date: 20100714
  Receipt Date: 20070915
  Transmission Date: 20110219
  Serious: No
  Sender: FDA-Public Use
  Company Number: US-PFIZER INC-2007065401

PATIENT
  Sex: Female
  Weight: 51.8 kg

DRUGS (7)
  1. CHANTIX [Suspect]
     Indication: SMOKING CESSATION THERAPY
     Route: 048
     Dates: start: 20070101
  2. ELIDEL [Concomitant]
  3. MULTI-VITAMINS [Concomitant]
  4. ULTRACET [Concomitant]
  5. FLONASE [Concomitant]
  6. ALBUTEROL [Concomitant]
  7. CALCIUM [Concomitant]

REACTIONS (6)
  - ABDOMINAL DISTENSION [None]
  - DIZZINESS [None]
  - ERUCTATION [None]
  - FLATULENCE [None]
  - HYPOTENSION [None]
  - NAUSEA [None]
